FAERS Safety Report 9787285 (Version 2)
Quarter: 2013Q4

REPORT INFORMATION
  Report Type: Spontaneous
  Country: GB (occurrence: GB)
  Receive Date: 20131230
  Receipt Date: 20131230
  Transmission Date: 20140711
  Serious: Yes (Life-Threatening, Hospitalization)
  Sender: FDA-Public Use
  Company Number: GB-BEH-2013037667

PATIENT
  Age: 61 Year
  Sex: Female
  Weight: 80 kg

DRUGS (14)
  1. BERINERT [Suspect]
     Dosage: START DATE APR-2012, THERAPY DATES: EVERY MONDAY 2000 UNITS, WEDNESDAY 2000 UNITS,FRIDAY 2500 UNITS
  2. BERINERT [Suspect]
     Indication: HEREDITARY ANGIOEDEMA
  3. BERINERT [Suspect]
     Indication: PROPHYLAXIS
  4. PREGABALIN [Concomitant]
  5. COLESTYRAMINE [Concomitant]
  6. HUMULIN [Concomitant]
     Dosage: 1 30/10
  7. DOMPERIDONE [Concomitant]
     Dosage: 10MG AT NIGHT
  8. CALCIUM/VIT D [Concomitant]
  9. MULTIVITAMITS T [Concomitant]
  10. NALCROM [Concomitant]
  11. ZOPICLONE [Concomitant]
     Dosage: AT NIGHT
  12. SYMBICORT [Concomitant]
     Dosage: 200 T
     Route: 055
  13. ALVERINE [Concomitant]
  14. CYCLIZINE [Concomitant]

REACTIONS (6)
  - Pulmonary embolism [Recovered/Resolved]
  - Dyspnoea [Recovering/Resolving]
  - Malaise [Not Recovered/Not Resolved]
  - Fibrin D dimer increased [Recovered/Resolved]
  - Coagulation factor VIII level increased [Not Recovered/Not Resolved]
  - Coagulation factor IX level increased [Not Recovered/Not Resolved]
